FAERS Safety Report 7407605-4 (Version None)
Quarter: 2011Q2

REPORT INFORMATION
  Report Type: 
  Country: None (occurrence: None)
  Receive Date: 20110405
  Receipt Date: 20110317
  Transmission Date: 20111010
  Serious: Yes (Hospitalization, Other)
  Sender: FDA-Public Use
  Company Number: 2011P1005029

PATIENT
  Age: 49 Year
  Sex: Female
  Weight: 83.9154 kg

DRUGS (9)
  1. IRON INFUSION (UNSPECIFIED) (NO PREF. NAME) [Suspect]
     Indication: SERUM FERRITIN DECREASED
     Dosage: ; IV
     Route: 042
     Dates: start: 20100401
  2. MORPHINE SULFATE [Concomitant]
  3. IRON [Concomitant]
  4. WARFARIN SODIUM [Suspect]
     Indication: PULMONARY EMBOLISM
     Dosage: ; QD; PO
     Route: 048
     Dates: start: 20091101, end: 20100401
  5. ACTIQ [Concomitant]
  6. ZANTAC [Concomitant]
  7. NEURONTIN [Concomitant]
  8. MULTIVITAMIN WITH IRON [Concomitant]
  9. FLONASE [Concomitant]

REACTIONS (22)
  - ABDOMINAL DISTENSION [None]
  - PSEUDOMONAS INFECTION [None]
  - SWELLING FACE [None]
  - PRURITUS [None]
  - SERUM FERRITIN DECREASED [None]
  - ANXIETY [None]
  - STAPHYLOCOCCAL INFECTION [None]
  - STREPTOCOCCAL INFECTION [None]
  - GASTROINTESTINAL HAEMORRHAGE [None]
  - ABDOMINAL PAIN LOWER [None]
  - MUSCULOSKELETAL PAIN [None]
  - GASTROOESOPHAGEAL REFLUX DISEASE [None]
  - ERUCTATION [None]
  - SWOLLEN TONGUE [None]
  - BURNING SENSATION [None]
  - ABDOMINAL PAIN UPPER [None]
  - OESOPHAGEAL POLYP [None]
  - OVERGROWTH BACTERIAL [None]
  - CHEST PAIN [None]
  - DIARRHOEA [None]
  - CANDIDIASIS [None]
  - GASTROINTESTINAL INFLAMMATION [None]
